FAERS Safety Report 25673930 (Version 1)
Quarter: 2025Q3

REPORT INFORMATION
  Report Type: Report from Study
  Country: US (occurrence: IN)
  Receive Date: 20250813
  Receipt Date: 20250813
  Transmission Date: 20251020
  Serious: No
  Sender: SUNOVION
  Company Number: US-SUMITOMO PHARMA SWITZERLAND GMBH-2025SPA006595

PATIENT
  Age: 67 Year
  Sex: Male

DRUGS (3)
  1. ORGOVYX [Suspect]
     Active Substance: RELUGOLIX
     Indication: Prostate cancer
     Route: 048
  2. ORGOVYX [Suspect]
     Active Substance: RELUGOLIX
     Dosage: 120 MG, QD
     Route: 048
     Dates: start: 20250413
  3. XTANDI [Suspect]
     Active Substance: ENZALUTAMIDE
     Indication: Prostate cancer
     Dosage: 160 MG, QD
     Dates: start: 20250413

REACTIONS (10)
  - Chest pain [Unknown]
  - Extrasystoles [Unknown]
  - Dizziness [Unknown]
  - Alopecia [Recovering/Resolving]
  - Lethargy [Unknown]
  - Psoriasis [Unknown]
  - Fatigue [Unknown]
  - Insomnia [Unknown]
  - Libido decreased [Unknown]
  - Therapy interrupted [Unknown]
